FAERS Safety Report 5762146-5 (Version None)
Quarter: 2008Q2

REPORT INFORMATION
  Report Type: 
  Country: None (occurrence: None)
  Receive Date: 20080604
  Receipt Date: 20080520
  Transmission Date: 20081010
  Serious: Yes (Other)
  Sender: FDA-Public Use
  Company Number: 2008BI013239

PATIENT
  Sex: Male

DRUGS (6)
  1. ZEVALIN [Suspect]
     Indication: NON-HODGKIN'S LYMPHOMA
     Dosage: 11 MBQ; 1X; IV
     Route: 042
  2. RITUXIMAB [Concomitant]
  3. RITUXIMAB [Concomitant]
  4. INTERFERON ALPHA [Concomitant]
  5. BEAM CHEMOTHERAPY [Concomitant]
  6. CHOP CHEMOTHERAPY [Concomitant]

REACTIONS (3)
  - CATHETER RELATED INFECTION [None]
  - HAEMATOTOXICITY [None]
  - PSEUDOMONAS INFECTION [None]
